FAERS Safety Report 16229822 (Version 2)
Quarter: 2019Q2

REPORT INFORMATION
  Report Type: Report from Study
  Country: NL (occurrence: NL)
  Receive Date: 20190423
  Receipt Date: 20190621
  Transmission Date: 20190711
  Serious: Yes (Other)
  Sender: FDA-Public Use
  Company Number: NL-ASTRAZENECA-2019SE31849

PATIENT
  Age: 28100 Day
  Sex: Female

DRUGS (7)
  1. IRBESARTAN. [Concomitant]
     Active Substance: IRBESARTAN
  2. MACROGOL [Concomitant]
     Active Substance: POLYETHYLENE GLYCOLS
  3. RIVAROXABAN [Concomitant]
     Active Substance: RIVAROXABAN
  4. TOLTERODINE [Concomitant]
     Active Substance: TOLTERODINE
  5. COLECALCIFEROL [Concomitant]
     Active Substance: CHOLECALCIFEROL
  6. FENTANYL. [Concomitant]
     Active Substance: FENTANYL
  7. FASLODEX [Suspect]
     Active Substance: FULVESTRANT
     Indication: BREAST CANCER STAGE IV
     Route: 030
     Dates: start: 201808

REACTIONS (4)
  - Dizziness [Unknown]
  - Fall [Unknown]
  - Carpal tunnel syndrome [Unknown]
  - Injection site coldness [Unknown]

NARRATIVE: CASE EVENT DATE: 20190219
